FAERS Safety Report 6773330-6 (Version None)
Quarter: 2010Q2

REPORT INFORMATION
  Report Type: 
  Country: None (occurrence: None)
  Receive Date: 20100611
  Receipt Date: 20100528
  Transmission Date: 20101027
  Serious: Yes (Life-Threatening)
  Sender: FDA-Public Use
  Company Number: CLOF-10723

PATIENT
  Age: 62 Year
  Sex: Male

DRUGS (11)
  1. CLOFARABINE OR PLACEBO (CODE NOR BROKEN) [Suspect]
     Indication: ACUTE MYELOID LEUKAEMIA
     Dosage: BLINDED, INFORMATION WITHHELD.
     Dates: start: 20071017, end: 20071018
  2. CYTARABINE [Suspect]
     Indication: ACUTE MYELOID LEUKAEMIA
     Dosage: 81.4 MG, QD, INTRAVENOUS
     Route: 042
     Dates: start: 20071017, end: 20071018
  3. AUGMENTIN (CLAVULANIC ACID) [Concomitant]
  4. FLUCONAZOLE [Concomitant]
  5. DEXAMETHASONE [Concomitant]
  6. CEFEPIME [Concomitant]
  7. ALLOPURINOL [Concomitant]
  8. ACYCLOVIR [Concomitant]
  9. LANOXIN [Concomitant]
  10. AZITHROMYCIN [Concomitant]
  11. VANCOMYCIN [Concomitant]

REACTIONS (10)
  - ATRIAL FLUTTER [None]
  - BACK PAIN [None]
  - BLOOD PRESSURE SYSTOLIC INSPIRATORY DECREASED [None]
  - CARDIAC TAMPONADE [None]
  - KUSSMAUL RESPIRATION [None]
  - MUSCULOSKELETAL PAIN [None]
  - PERICARDIAL EFFUSION [None]
  - PERICARDITIS [None]
  - RESPIRATORY DISTRESS [None]
  - TACHYCARDIA [None]
